FAERS Safety Report 4931403-4 (Version None)
Quarter: 2006Q1

REPORT INFORMATION
  Report Type: 
  Country: None (occurrence: None)
  Receive Date: 20060303
  Receipt Date: 20060228
  Transmission Date: 20060701
  Serious: Yes (Other)
  Sender: FDA-Public Use
  Company Number: GB-SP-2006-00489

PATIENT
  Age: 51 Year
  Sex: Male

DRUGS (1)
  1. BCG  THERAPEUTICS [Suspect]
     Indication: BLADDER CANCER

REACTIONS (6)
  - CUTANEOUS TUBERCULOSIS [None]
  - DISSEMINATED TUBERCULOSIS [None]
  - GRANULOMA SKIN [None]
  - HAEMATURIA [None]
  - MYCOBACTERIAL INFECTION [None]
  - RASH [None]
